FAERS Safety Report 8723820 (Version 2)
Quarter: 2012Q4

REPORT INFORMATION
  Report Type: 
  Country: US (occurrence: US)
  Receive Date: 20120815
  Receipt Date: 20121023
  Transmission Date: 20130627
  Serious: Yes (Death, Hospitalization, Other)
  Sender: FDA-Public Use
  Company Number: US-ELI_LILLY_AND_COMPANY-US201208003196

PATIENT
  Sex: Female

DRUGS (2)
  1. CYMBALTA [Suspect]
     Indication: DIABETIC NEUROPATHY
     Dosage: 60 mg, qd
  2. CYMBALTA [Suspect]
     Dosage: 60 mg, qd
     Dates: start: 201204

REACTIONS (7)
  - Death [Fatal]
  - Dementia [Unknown]
  - Pulmonary oedema [Unknown]
  - Dialysis [Unknown]
  - Asthenia [Unknown]
  - Gait disturbance [Unknown]
  - Decreased appetite [Unknown]
